FAERS Safety Report 15778031 (Version 1)
Quarter: 2018Q4

REPORT INFORMATION
  Report Type: Spontaneous
  Country: JP (occurrence: JP)
  Receive Date: 20181231
  Receipt Date: 20181231
  Transmission Date: 20190205
  Serious: Yes (Death)
  Sender: FDA-Public Use
  Company Number: JP-JNJFOC-20181127966

PATIENT
  Age: 70 Year
  Sex: Male

DRUGS (2)
  1. XARELTO [Suspect]
     Active Substance: RIVAROXABAN
     Indication: VENA CAVA THROMBOSIS
     Route: 048
     Dates: start: 20151124, end: 201604
  2. XARELTO [Suspect]
     Active Substance: RIVAROXABAN
     Indication: VENA CAVA THROMBOSIS
     Route: 048
     Dates: start: 201604, end: 20160614

REACTIONS (4)
  - Epistaxis [Recovering/Resolving]
  - Hepatocellular carcinoma [Fatal]
  - Epistaxis [Recovering/Resolving]
  - Intentional product use issue [Unknown]

NARRATIVE: CASE EVENT DATE: 201604
